FAERS Safety Report 9969906 (Version 1)
Quarter: 2014Q1

REPORT INFORMATION
  Report Type: Spontaneous
  Country: US (occurrence: US)
  Receive Date: 20140306
  Receipt Date: 20140306
  Transmission Date: 20141002
  Serious: Yes (Other)
  Sender: FDA-Public Use
  Company Number: US-SA-2014SA027577

PATIENT
  Sex: Female

DRUGS (3)
  1. LANTUS SOLOSTAR [Suspect]
     Route: 058
  2. LANTUS [Suspect]
     Route: 058
  3. SOLOSTAR [Concomitant]

REACTIONS (3)
  - Cerebral atrophy [Unknown]
  - Memory impairment [Unknown]
  - Arthritis [Unknown]
